FAERS Safety Report 25983209 (Version 2)
Quarter: 2025Q4

REPORT INFORMATION
  Report Type: Spontaneous
  Country: JP (occurrence: JP)
  Receive Date: 20251031
  Receipt Date: 20251113
  Transmission Date: 20260117
  Serious: Yes (Other)
  Sender: MYLAN
  Company Number: JP-VIATRISJAPAN-2025M1090612AA

PATIENT
  Age: 3 Year
  Sex: Male

DRUGS (16)
  1. REVATIO [Suspect]
     Active Substance: SILDENAFIL CITRATE
     Indication: Pulmonary arterial hypertension
  2. REVATIO [Suspect]
     Active Substance: SILDENAFIL CITRATE
     Route: 065
  3. REVATIO [Suspect]
     Active Substance: SILDENAFIL CITRATE
     Route: 065
  4. REVATIO [Suspect]
     Active Substance: SILDENAFIL CITRATE
  5. MACITENTAN [Suspect]
     Active Substance: MACITENTAN
     Indication: Pulmonary arterial hypertension
  6. MACITENTAN [Suspect]
     Active Substance: MACITENTAN
     Route: 065
  7. MACITENTAN [Suspect]
     Active Substance: MACITENTAN
     Route: 065
  8. MACITENTAN [Suspect]
     Active Substance: MACITENTAN
  9. HYDROXOCOBALAMIN ACETATE [Concomitant]
     Active Substance: HYDROXOCOBALAMIN ACETATE
     Indication: Inborn error of metabolism
  10. HYDROXOCOBALAMIN ACETATE [Concomitant]
     Active Substance: HYDROXOCOBALAMIN ACETATE
     Route: 048
  11. HYDROXOCOBALAMIN ACETATE [Concomitant]
     Active Substance: HYDROXOCOBALAMIN ACETATE
     Route: 048
  12. HYDROXOCOBALAMIN ACETATE [Concomitant]
     Active Substance: HYDROXOCOBALAMIN ACETATE
  13. BETAINE [Concomitant]
     Active Substance: BETAINE
     Indication: Inborn error of metabolism
  14. BETAINE [Concomitant]
     Active Substance: BETAINE
     Route: 048
  15. BETAINE [Concomitant]
     Active Substance: BETAINE
     Route: 048
  16. BETAINE [Concomitant]
     Active Substance: BETAINE

REACTIONS (2)
  - Pulmonary congestion [Recovering/Resolving]
  - Condition aggravated [Recovering/Resolving]
